FAERS Safety Report 21839241 (Version 2)
Quarter: 2023Q1

REPORT INFORMATION
  Report Type: Spontaneous
  Country: US (occurrence: US)
  Receive Date: 20230109
  Receipt Date: 20230112
  Transmission Date: 20230417
  Serious: No
  Sender: FDA-Public Use
  Company Number: US-ABBVIE-4261773

PATIENT
  Age: 83 Year
  Sex: Male
  Weight: 61.234 kg

DRUGS (8)
  1. LUPRON DEPOT [Suspect]
     Active Substance: LEUPROLIDE ACETATE
     Indication: Prostate cancer
     Route: 030
     Dates: start: 20221003
  2. LUPRON DEPOT [Suspect]
     Active Substance: LEUPROLIDE ACETATE
     Route: 030
  3. ASPIRIN [Concomitant]
     Active Substance: ASPIRIN
     Indication: Cardiac disorder
     Dosage: 81 MG
     Route: 065
  4. RAMIPRIL [Concomitant]
     Active Substance: RAMIPRIL
     Indication: Product used for unknown indication
     Route: 065
  5. CRESTOR [Concomitant]
     Active Substance: ROSUVASTATIN CALCIUM
     Indication: Lipids increased
     Route: 065
  6. COREG [Concomitant]
     Active Substance: CARVEDILOL
     Indication: Cardiac disorder
     Route: 065
  7. BICALUTAMIDE [Concomitant]
     Active Substance: BICALUTAMIDE
     Indication: Prostate cancer
     Route: 065
  8. AMLODIPINE [Concomitant]
     Active Substance: AMLODIPINE BESYLATE
     Indication: Hypertension
     Route: 065

REACTIONS (2)
  - Blood glucose increased [Recovered/Resolved]
  - Weight decreased [Recovered/Resolved]

NARRATIVE: CASE EVENT DATE: 20221031
